APPROVED DRUG PRODUCT: PRALIDOXIME CHLORIDE (AUTOINJECTOR)
Active Ingredient: PRALIDOXIME CHLORIDE
Strength: 600MG/2ML (300MG/ML)
Dosage Form/Route: SOLUTION;INTRAMUSCULAR
Application: N018986 | Product #001
Applicant: MERIDIAN MEDICAL TECHNOLOGIES INC
Approved: Apr 26, 1983 | RLD: Yes | RS: No | Type: DISCN